FAERS Safety Report 16781182 (Version 1)
Quarter: 2019Q3

REPORT INFORMATION
  Report Type: Spontaneous
  Country: US (occurrence: US)
  Receive Date: 20190906
  Receipt Date: 20190906
  Transmission Date: 20191005
  Serious: No
  Sender: FDA-Public Use
  Company Number: US-SA-2019SA246214

PATIENT
  Sex: Female

DRUGS (1)
  1. ZANTAC [Suspect]
     Active Substance: RANITIDINE HYDROCHLORIDE
     Indication: DYSPEPSIA
     Dosage: 3 DF

REACTIONS (4)
  - Insomnia [Unknown]
  - Dyspepsia [Not Recovered/Not Resolved]
  - Extra dose administered [Unknown]
  - Drug ineffective [Not Recovered/Not Resolved]
